FAERS Safety Report 9664314 (Version 1)
Quarter: 2013Q4

REPORT INFORMATION
  Report Type: Spontaneous
  Country: JP (occurrence: JP)
  Receive Date: 20131101
  Receipt Date: 20131101
  Transmission Date: 20140711
  Serious: Yes (Other)
  Sender: FDA-Public Use
  Company Number: JP-CELGENEUS-087-21880-13104280

PATIENT
  Sex: 0

DRUGS (2)
  1. REVLIMID [Suspect]
     Indication: PLASMA CELL MYELOMA
     Dosage: 5 - 10 - 15 - 25MG
     Route: 048
  2. LENADEX [Suspect]
     Indication: PLASMA CELL MYELOMA
     Route: 065

REACTIONS (7)
  - Delirium [Unknown]
  - Urinary retention [Unknown]
  - Neutrophil count decreased [Unknown]
  - Platelet count decreased [Unknown]
  - Febrile neutropenia [Unknown]
  - Pneumonia [Unknown]
  - Constipation [Unknown]
